FAERS Safety Report 18831209 (Version 2)
Quarter: 2021Q1

REPORT INFORMATION
  Report Type: Spontaneous
  Country: GB (occurrence: GB)
  Receive Date: 20210203
  Receipt Date: 20210215
  Transmission Date: 20210419
  Serious: Yes (Life-Threatening, Other)
  Sender: FDA-Public Use
  Company Number: GB-BAXTER-2021BAX001782

PATIENT
  Age: 28 Year
  Sex: Male

DRUGS (12)
  1. IFOSFAMIDE INJECTION 2G [Suspect]
     Active Substance: IFOSFAMIDE
     Indication: TESTICULAR GERM CELL TUMOUR
  2. IFOSFAMIDE INJECTION 2G [Suspect]
     Active Substance: IFOSFAMIDE
     Indication: CHOROID NEOPLASM
     Dosage: CYCLICAL
     Route: 065
  3. PLATINUM [Concomitant]
     Active Substance: PLATINUM
     Indication: TESTICULAR GERM CELL TUMOUR
  4. ETOPOSIDE. [Suspect]
     Active Substance: ETOPOSIDE
     Indication: TESTICULAR GERM CELL TUMOUR
  5. CARBOPLATIN. [Suspect]
     Active Substance: CARBOPLATIN
     Indication: CHOROID NEOPLASM
     Dosage: CYCLICAL
     Route: 065
  6. PLATINUM [Concomitant]
     Active Substance: PLATINUM
     Indication: TESTICULAR MALIGNANT TERATOMA
     Dosage: 4 CYCLES
     Route: 065
  7. ETOPOSIDE. [Suspect]
     Active Substance: ETOPOSIDE
     Indication: TESTICULAR MALIGNANT TERATOMA
  8. IFOSFAMIDE INJECTION 2G [Suspect]
     Active Substance: IFOSFAMIDE
     Indication: TESTICULAR MALIGNANT TERATOMA
  9. ETOPOSIDE. [Suspect]
     Active Substance: ETOPOSIDE
     Indication: CHOROID NEOPLASM
     Dosage: CYCLICAL
     Route: 065
  10. CARBOPLATIN. [Suspect]
     Active Substance: CARBOPLATIN
     Indication: TESTICULAR MALIGNANT TERATOMA
  11. CARBOPLATIN. [Suspect]
     Active Substance: CARBOPLATIN
     Indication: TESTICULAR GERM CELL TUMOUR
  12. PLATINUM [Concomitant]
     Active Substance: PLATINUM
     Indication: CHOROID NEOPLASM

REACTIONS (2)
  - Retinal haemorrhage [Recovering/Resolving]
  - Thrombocytopenia [Unknown]
